FAERS Safety Report 8777924 (Version 1)
Quarter: 2012Q4

REPORT INFORMATION
  Report Type: 
  Country: DE (occurrence: DE)
  Receive Date: 20120911
  Receipt Date: 20120911
  Transmission Date: 20130627
  Serious: Yes (Hospitalization)
  Sender: FDA-Public Use
  Company Number: DE-MYLANLABS-2012S1007015

PATIENT
  Age: 48 Year
  Sex: Female

DRUGS (2)
  1. OLANZAPINE [Suspect]
     Indication: SCHIZOPHRENIA, CATATONIC TYPE
     Dosage: 10mg on day 2
     Route: 048
  2. LORAZEPAM [Suspect]
     Indication: SCHIZOPHRENIA, CATATONIC TYPE
     Dosage: 3-4.5 mg/day divided into 3 single doses: 1-1-2.5mg, then 1-1-2.5mg, then 1-1-1mg
     Route: 048

REACTIONS (1)
  - Hypothermia [Recovered/Resolved]
